FAERS Safety Report 4525247-5 (Version None)
Quarter: 2004Q4

REPORT INFORMATION
  Report Type: 
  Country: None (occurrence: None)
  Receive Date: 20041213
  Receipt Date: 20040909
  Transmission Date: 20050328
  Serious: Yes (Other)
  Sender: FDA-Public Use
  Company Number: US-ROCHE-380241

PATIENT
  Age: 56 Year
  Sex: Male
  Weight: 77.9 kg

DRUGS (3)
  1. PEGASYS [Suspect]
     Route: 058
     Dates: start: 20040330, end: 20040805
  2. COPEGUS [Suspect]
     Route: 048
     Dates: start: 20040330, end: 20040726
  3. COPEGUS [Suspect]
     Route: 048
     Dates: start: 20040726, end: 20040805

REACTIONS (10)
  - ALOPECIA [None]
  - EYE DISCHARGE [None]
  - EYE DISORDER [None]
  - NEUTROPHIL COUNT DECREASED [None]
  - PURULENT DISCHARGE [None]
  - RASH [None]
  - SECRETION DISCHARGE [None]
  - SKIN HYPERPIGMENTATION [None]
  - WHITE BLOOD CELL COUNT DECREASED [None]
  - WOUND DRAINAGE [None]
